FAERS Safety Report 8177911-7 (Version None)
Quarter: 2012Q1

REPORT INFORMATION
  Report Type: 
  Country: None (occurrence: None)
  Receive Date: 20120126
  Receipt Date: 20111128
  Transmission Date: 20120608
  Serious: No
  Sender: FDA-Public Use
  Company Number: PHEH2011US008874

PATIENT
  Age: 71 Year
  Sex: Male

DRUGS (2)
  1. AFINITOR [Suspect]
     Indication: RENAL CANCER
     Dosage: 10 MG QD, ORAL : 5 MG, DAILY, ORAL
     Route: 048
     Dates: start: 20110901
  2. AFINITOR [Suspect]
     Indication: RENAL CANCER
     Dosage: 10 MG QD, ORAL : 5 MG, DAILY, ORAL
     Route: 048
     Dates: end: 20111128

REACTIONS (2)
  - DRUG INTOLERANCE [None]
  - RED BLOOD CELL COUNT DECREASED [None]
